FAERS Safety Report 6168957-9 (Version None)
Quarter: 2009Q2

REPORT INFORMATION
  Report Type: 
  Country: None (occurrence: None)
  Receive Date: 20090427
  Receipt Date: 20090423
  Transmission Date: 20091009
  Serious: No
  Sender: FDA-Public Use
  Company Number: US-B.I. PHARMACEUTICALS,INC./RIDGEFIELD-2009-BP-05162BP

PATIENT
  Age: 54 Year
  Sex: Female

DRUGS (7)
  1. SPIRIVA [Suspect]
  2. CLARITIN [Suspect]
     Indication: LACRIMATION INCREASED
     Route: 048
     Dates: start: 20090324
  3. CLARITIN [Suspect]
     Indication: SNEEZING
  4. CLARITIN [Suspect]
     Indication: THROAT IRRITATION
  5. CLARITIN [Suspect]
     Indication: NASAL DISCOMFORT
  6. ALBUTEROL SULFATE [Suspect]
  7. ZITHROMAX [Concomitant]

REACTIONS (1)
  - DIZZINESS [None]
